FAERS Safety Report 6406122-8 (Version None)
Quarter: 2009Q4

REPORT INFORMATION
  Report Type: 
  Country: None (occurrence: None)
  Receive Date: 20091019
  Receipt Date: 20091008
  Transmission Date: 20100525
  Serious: Yes (Disabling)
  Sender: FDA-Public Use
  Company Number: DE-SANOFI-SYNTHELABO-F04200900119

PATIENT
  Age: 57 Year
  Sex: Male

DRUGS (10)
  1. MAGNESIUM SULFATE [Concomitant]
     Indication: DRUG USE FOR UNKNOWN INDICATION
     Dosage: UNK
     Route: 065
  2. CALCIUM GLUCONATE [Concomitant]
     Indication: DRUG USE FOR UNKNOWN INDICATION
     Dosage: UNK
     Route: 065
  3. METOCLOPRAMIDE [Concomitant]
     Indication: PREMEDICATION
     Dosage: UNK
     Route: 065
  4. APREPITANT [Concomitant]
     Indication: PREMEDICATION
     Dosage: UNK
     Route: 048
  5. PALONOSETRON [Concomitant]
     Indication: PREMEDICATION
     Dosage: 250 MG
     Route: 065
  6. DEXAMETHASONE TAB [Concomitant]
     Indication: PREMEDICATION
     Dosage: 8 MG
     Route: 065
  7. DOCETAXEL [Suspect]
     Indication: GASTROOESOPHAGEAL CANCER
     Route: 041
     Dates: start: 20090723, end: 20090723
  8. FOLINIC ACID [Suspect]
     Indication: GASTROOESOPHAGEAL CANCER
     Route: 041
     Dates: start: 20090723, end: 20090723
  9. FLUOROURACIL [Suspect]
     Indication: GASTROOESOPHAGEAL CANCER
     Route: 041
     Dates: start: 20090723, end: 20090723
  10. OXALIPLATIN [Suspect]
     Indication: GASTROOESOPHAGEAL CANCER
     Route: 041
     Dates: start: 20090723, end: 20090723

REACTIONS (1)
  - PERONEAL NERVE PALSY [None]
